FAERS Safety Report 9402745 (Version 1)
Quarter: 2013Q3

REPORT INFORMATION
  Report Type: Spontaneous
  Country: US (occurrence: None)
  Receive Date: 20130715
  Receipt Date: 20130715
  Transmission Date: 20140515
  Serious: Yes (Death)
  Sender: FDA-Public Use
  Company Number: None

PATIENT
  Age: 52 Year
  Sex: Female

DRUGS (6)
  1. STIVARGA 40MG BAYER [Suspect]
     Indication: COLORECTAL CANCER
     Dosage: 2  QD  PO?~ 7 MONTHS
     Route: 048
  2. LEVOFLOXACIN [Concomitant]
  3. METOPROLOL ER [Concomitant]
  4. LIDOCAINE VISCOUS [Concomitant]
  5. PREDNISONE [Concomitant]
  6. AVASTIN [Concomitant]

REACTIONS (2)
  - Disease progression [None]
  - Therapeutic product ineffective [None]
